FAERS Safety Report 12426396 (Version 1)
Quarter: 2016Q2

REPORT INFORMATION
  Report Type: Spontaneous
  Country: FR (occurrence: FR)
  Receive Date: 20160601
  Receipt Date: 20160601
  Transmission Date: 20160815
  Serious: Yes (Hospitalization, Other)
  Sender: FDA-Public Use
  Company Number: FR-GLAXOSMITHKLINE-B0527370A

PATIENT
  Age: 72 Year
  Sex: Female

DRUGS (13)
  1. SINTROM [Suspect]
     Active Substance: ACENOCOUMAROL
     Indication: PULMONARY EMBOLISM
     Route: 048
  2. DIPROSONE [Concomitant]
     Active Substance: BETAMETHASONE DIPROPIONATE
     Indication: PSORIASIS
     Route: 065
  3. DEBRIDAT [Suspect]
     Active Substance: TRIMEBUTINE MALEATE
     Indication: COLITIS
     Route: 048
     Dates: start: 20070914, end: 20070924
  4. FORLAX [Suspect]
     Active Substance: POLYETHYLENE GLYCOL 4000
     Indication: PRODUCT USED FOR UNKNOWN INDICATION
     Route: 048
  5. LEPTICUR [Suspect]
     Active Substance: TROPATEPINE HYDROCHLORIDE
     Indication: PROPHYLAXIS
     Route: 048
  6. ZYPREXA [Suspect]
     Active Substance: OLANZAPINE
     Indication: PSYCHOTIC DISORDER
     Route: 048
  7. TIORFAN [Concomitant]
     Active Substance: RACECADOTRIL
     Indication: PRODUCT USED FOR UNKNOWN INDICATION
     Route: 048
  8. DEPAKINE CHRONO 500 MG [Suspect]
     Active Substance: VALPROIC ACID
     Indication: EPILEPSY
     Route: 048
  9. IMOVANE [Suspect]
     Active Substance: ZOPICLONE
     Indication: PRODUCT USED FOR UNKNOWN INDICATION
     Route: 048
  10. LASILIX [Suspect]
     Active Substance: FUROSEMIDE
     Indication: PRODUCT USED FOR UNKNOWN INDICATION
     Route: 048
  11. AUGMENTIN [Suspect]
     Active Substance: AMOXICILLIN\CLAVULANATE POTASSIUM
     Indication: COLITIS
     Route: 048
     Dates: start: 20070914, end: 20070924
  12. ULTRA LEVURE [Suspect]
     Active Substance: SACCHAROMYCES CEREVISIAE
     Indication: COLITIS
     Route: 048
     Dates: start: 20070914, end: 20070924
  13. DOMPERIDONE [Suspect]
     Active Substance: DOMPERIDONE
     Indication: PRODUCT USED FOR UNKNOWN INDICATION
     Route: 048

REACTIONS (13)
  - Breath sounds [Unknown]
  - Rales [Unknown]
  - Toxic skin eruption [Recovered/Resolved]
  - Dermatitis [Unknown]
  - Rash maculo-papular [Recovered/Resolved]
  - Peripheral venous disease [Unknown]
  - Intertrigo [None]
  - Oedema peripheral [Unknown]
  - Skin lesion [Recovered/Resolved]
  - Lymphatic disorder [Unknown]
  - Psoriasis [None]
  - Pruritus [Recovered/Resolved]
  - Cardiac murmur [Unknown]

NARRATIVE: CASE EVENT DATE: 20070926
